FAERS Safety Report 25022539 (Version 1)
Quarter: 2025Q1

REPORT INFORMATION
  Report Type: Spontaneous
  Country: US (occurrence: US)
  Receive Date: 20250228
  Receipt Date: 20250228
  Transmission Date: 20250408
  Serious: No
  Sender: UROGEN PHARMA
  Company Number: US-UROGEN PHARMA LTD.-2025-UGN-000001

PATIENT

DRUGS (5)
  1. JELMYTO [Suspect]
     Active Substance: MITOMYCIN
     Indication: Transitional cell cancer of the renal pelvis and ureter
     Dates: start: 202310, end: 202310
  2. JELMYTO [Suspect]
     Active Substance: MITOMYCIN
     Dosage: 8 MILLILITER, ONCE A WEEK (INSTILLATION)
     Dates: start: 20241218, end: 20241218
  3. JELMYTO [Suspect]
     Active Substance: MITOMYCIN
     Dosage: 8 MILLILITER, ONCE A WEEK (INSTILLATION)
     Dates: start: 20241224, end: 20241224
  4. JELMYTO [Suspect]
     Active Substance: MITOMYCIN
  5. TRAZODONE [Concomitant]
     Active Substance: TRAZODONE HYDROCHLORIDE
     Indication: Sleep disorder

REACTIONS (14)
  - Device malfunction [Unknown]
  - Swelling face [Recovered/Resolved]
  - Swelling face [Unknown]
  - Papule [Recovered/Resolved]
  - Rash erythematous [Recovered/Resolved]
  - Nausea [Recovered/Resolved]
  - Vomiting [Recovered/Resolved]
  - Dysuria [Recovered/Resolved]
  - Asthenia [Unknown]
  - Malaise [Recovered/Resolved]
  - Fatigue [Recovered/Resolved]
  - Rash erythematous [Unknown]
  - Nausea [Unknown]
  - Vomiting [Unknown]

NARRATIVE: CASE EVENT DATE: 20241224
